FAERS Safety Report 19273970 (Version 11)
Quarter: 2025Q4

REPORT INFORMATION
  Report Type: Spontaneous
  Country: JP (occurrence: JP)
  Receive Date: 20210519
  Receipt Date: 20251110
  Transmission Date: 20260117
  Serious: Yes (Death, Hospitalization, Other)
  Sender: BRISTOL-MYERS SQUIBB COMPANY
  Company Number: JP-BRISTOL-MYERS SQUIBB COMPANY-BMS-2020-113713

PATIENT
  Age: 33 Year
  Sex: Male
  Weight: 64.1 kg

DRUGS (7)
  1. YERVOY [Suspect]
     Active Substance: IPILIMUMAB
     Indication: Malignant melanoma
     Dosage: 237 MILLIGRAM, ONE TIME DOSE. NUMBER OF DOSES: 1
     Route: 041
     Dates: start: 20191025, end: 20191025
  2. OPDIVO [Suspect]
     Active Substance: NIVOLUMAB
     Indication: Malignant melanoma
     Dosage: 80 MILLIGRAM, ONE TIME DOSE. NUMBER OF DOSES: 1
     Route: 041
     Dates: start: 20191025, end: 20191025
  3. BRAFTOVI [Suspect]
     Active Substance: ENCORAFENIB
     Indication: Hepatic neoplasm
     Dosage: 450 MILLIGRAM
     Dates: start: 20200109, end: 20200203
  4. BRAFTOVI [Suspect]
     Active Substance: ENCORAFENIB
     Indication: Malignant melanoma
  5. MEKTOVI [Suspect]
     Active Substance: BINIMETINIB
     Indication: Hepatic neoplasm
     Dosage: 90 MILLIGRAM
     Dates: start: 20200109, end: 20200203
  6. MEKTOVI [Suspect]
     Active Substance: BINIMETINIB
     Indication: Malignant melanoma
  7. IOPAMIDOL [Suspect]
     Active Substance: IOPAMIDOL
     Indication: Product used for unknown indication

REACTIONS (7)
  - Malignant neoplasm progression [Fatal]
  - Tumour associated fever [Recovered/Resolved]
  - Metastases to liver [Not Recovered/Not Resolved]
  - Hepatic failure [Recovering/Resolving]
  - Anaphylactic shock [Unknown]
  - Pyrexia [Recovered/Resolved]
  - Pancreatitis acute [Recovering/Resolving]

NARRATIVE: CASE EVENT DATE: 20191107
